FAERS Safety Report 7262092-4 (Version None)
Quarter: 2011Q1

REPORT INFORMATION
  Report Type: 
  Country: None (occurrence: None)
  Receive Date: 20110130
  Receipt Date: 20101202
  Transmission Date: 20110831
  Serious: No
  Sender: FDA-Public Use
  Company Number: US-ABBOTT-10P-163-0689038-00

PATIENT
  Age: 61 Year
  Sex: Female

DRUGS (12)
  1. COREG [Concomitant]
     Indication: CARDIAC DISORDER
  2. VITAMIN B6 [Concomitant]
     Indication: CARPAL TUNNEL SYNDROME
  3. LAMOTIL [Concomitant]
     Indication: DIARRHOEA
  4. VITAMIN B-12 [Concomitant]
     Indication: CROHN'S DISEASE
     Dosage: PHYSICIAN'S OFFICE
  5. HUMIRA [Suspect]
     Indication: CROHN'S DISEASE
     Dates: start: 20081201
  6. ASPIRIN [Concomitant]
     Indication: CARDIAC DISORDER
  7. CHOLESTYRAMINE [Concomitant]
     Indication: CROHN'S DISEASE
     Dosage: 2 POUCHES DAILY
  8. PRESSURE VISION EYE VITAMINS [Concomitant]
     Indication: PRODUCT USED FOR UNKNOWN INDICATION
  9. PROTONIX [Concomitant]
     Indication: GASTROOESOPHAGEAL REFLUX DISEASE
  10. ZYRTEC [Concomitant]
     Indication: HYPERSENSITIVITY
  11. DIOVAN [Concomitant]
     Indication: CARDIAC DISORDER
  12. HUMIRA [Suspect]
     Dosage: AN EXTRA DOSE WAS PRESCRIBED FOR THE PATIENT'S FLARE
     Dates: start: 20101001, end: 20101001

REACTIONS (1)
  - CROHN'S DISEASE [None]
